FAERS Safety Report 5471974-5 (Version None)
Quarter: 2007Q3

REPORT INFORMATION
  Report Type: 
  Country: None (occurrence: None)
  Receive Date: 20070928
  Receipt Date: 20070911
  Transmission Date: 20080115
  Serious: Yes (Other)
  Sender: FDA-Public Use
  Company Number: DE-BOEHRINGER INGELHEIM PHARMACEUTICALS, INC.-2007-DE-05564BY

PATIENT
  Sex: Male

DRUGS (14)
  1. KINZALMONO [Suspect]
     Indication: DRUG USE FOR UNKNOWN INDICATION
     Route: 048
     Dates: start: 20070830
  2. PHOS EX [Concomitant]
     Route: 048
  3. TORSEMIDE [Concomitant]
     Route: 048
  4. ISCOVER [Concomitant]
     Route: 048
  5. ASPIRIN [Concomitant]
     Route: 048
  6. CALCITRIOL [Concomitant]
  7. ZOLPIDEM TARTRATE [Concomitant]
     Route: 048
  8. AMPLODIPIN [Concomitant]
  9. OMEPRAZOLE [Concomitant]
     Route: 048
  10. INEGY [Concomitant]
     Route: 048
  11. CONCOR [Concomitant]
     Route: 048
  12. ENA PUREN [Concomitant]
     Route: 048
     Dates: end: 20070814
  13. RENAGEL [Concomitant]
     Route: 048
  14. NEPHROTRANS [Concomitant]
     Route: 048

REACTIONS (1)
  - HYPERTENSIVE CRISIS [None]
